FAERS Safety Report 6374361-0 (Version None)
Quarter: 2009Q3

REPORT INFORMATION
  Report Type: 
  Country: None (occurrence: None)
  Receive Date: 20090924
  Receipt Date: 20081030
  Transmission Date: 20100115
  Serious: No
  Sender: FDA-Public Use
  Company Number: A0754430A

PATIENT
  Sex: Male

DRUGS (10)
  1. EPZICOM [Suspect]
     Indication: HIV INFECTION
     Dosage: 300MG PER DAY
     Route: 048
     Dates: start: 20070925
  2. REYATAZ [Concomitant]
  3. RITONAVIR [Concomitant]
  4. LEVOTHYROXINE SODIUM [Concomitant]
  5. FLUCONAZOLE [Concomitant]
  6. ATOVAQUONE [Concomitant]
  7. AZITHROMYCIN [Concomitant]
  8. FLEXERIL [Concomitant]
  9. VALCYTE [Concomitant]
  10. MULTI-VITAMIN [Concomitant]

REACTIONS (1)
  - LIP EXFOLIATION [None]
